FAERS Safety Report 5386050-X (Version None)
Quarter: 2007Q3

REPORT INFORMATION
  Report Type: 
  Country: None (occurrence: None)
  Receive Date: 20070710
  Receipt Date: 20070627
  Transmission Date: 20080115
  Serious: Yes (Other)
  Sender: FDA-Public Use
  Company Number: 235310K07USA

PATIENT
  Age: 64 Year
  Sex: Female

DRUGS (4)
  1. REBIF [Suspect]
     Indication: MULTIPLE SCLEROSIS
     Dosage: 44 MCG, 3 IN 1 WEEKS,  SUBCUTANEOUS
     Route: 058
     Dates: start: 20061023
  2. WELLBUTRIN [Suspect]
     Dosage: 100 MG, 2 IN 1 DAYS, ORAL
     Route: 048
     Dates: start: 20050101, end: 20070501
  3. AMANTADINE                 (AMANTADINE /00055901/) [Concomitant]
  4. LISINOPRIL [Concomitant]

REACTIONS (3)
  - CONVULSION [None]
  - FALL [None]
  - POOR QUALITY SLEEP [None]
